FAERS Safety Report 9357946 (Version 1)
Quarter: 2013Q2

REPORT INFORMATION
  Report Type: Spontaneous
  Country: DE (occurrence: None)
  Receive Date: 20130617
  Receipt Date: 20130617
  Transmission Date: 20140414
  Serious: Yes (Congenital Anomaly, Other)
  Sender: FDA-Public Use
  Company Number: GER/GER/13/0030030

PATIENT
  Age: 0 Year
  Sex: Female
  Weight: 3.63 kg

DRUGS (5)
  1. FLUOXETINE [Suspect]
     Indication: PRODUCT USED FOR UNKNOWN INDICATION
     Route: 064
     Dates: start: 20071203, end: 20080122
  2. DIPIPERON [Suspect]
     Indication: PRODUCT USED FOR UNKNOWN INDICATION
     Route: 064
     Dates: start: 20071203, end: 20080122
  3. METHYLPHENIDAT [Suspect]
     Indication: PRODUCT USED FOR UNKNOWN INDICATION
     Route: 064
     Dates: start: 20071203, end: 20080122
  4. FOLIO FORTE (FOLIC ACID) [Concomitant]
  5. INSULIN (INSULIN) [Concomitant]

REACTIONS (6)
  - Patent ductus arteriosus [None]
  - Atrial septal defect [None]
  - Neonatal respiratory distress syndrome [None]
  - Hypoglycaemia neonatal [None]
  - Caesarean section [None]
  - Maternal drugs affecting foetus [None]
